FAERS Safety Report 9242305 (Version 1)
Quarter: 2013Q2

REPORT INFORMATION
  Report Type: Spontaneous
  Country: BE (occurrence: BE)
  Receive Date: 20130419
  Receipt Date: 20130419
  Transmission Date: 20140414
  Serious: Yes (Other)
  Sender: FDA-Public Use
  Company Number: BE-JNJFOC-20130405551

PATIENT
  Sex: 0

DRUGS (2)
  1. INFLIXIMAB, RECOMBINANT [Suspect]
     Indication: CROHN^S DISEASE
     Route: 042
  2. CERTOLIZUMAB [Suspect]
     Indication: CROHN^S DISEASE
     Route: 065

REACTIONS (4)
  - Hypersensitivity [Unknown]
  - Infusion related reaction [Unknown]
  - Drug intolerance [Unknown]
  - Therapeutic response decreased [Unknown]
